FAERS Safety Report 13055739 (Version 4)
Quarter: 2017Q1

REPORT INFORMATION
  Report Type: Report from Study
  Country: None (occurrence: FR)
  Receive Date: 20161222
  Receipt Date: 20170328
  Transmission Date: 20170428
  Serious: Yes (Death, Life-Threatening, Other)
  Sender: FDA-Public Use
  Company Number: FR-ABBVIE-16P-056-1817838-00

PATIENT
  Age: 84 Year
  Sex: Female

DRUGS (16)
  1. VENETOCLAX [Suspect]
     Active Substance: VENETOCLAX
     Route: 048
     Dates: start: 20161215, end: 20161218
  2. KARDEGIC [Concomitant]
     Active Substance: ASPIRIN LYSINE
     Indication: ATRIAL FIBRILLATION
     Route: 048
  3. DIFFU K [Concomitant]
     Active Substance: POTASSIUM CHLORIDE
     Indication: HYPERKALAEMIA
     Route: 048
  4. VENETOCLAX [Suspect]
     Active Substance: VENETOCLAX
     Indication: CHRONIC LYMPHOCYTIC LEUKAEMIA
     Route: 048
     Dates: start: 20161213, end: 20161214
  5. DAFLON [Concomitant]
     Active Substance: DIOSMIN\HESPERIDIN
     Indication: PERIPHERAL VENOUS DISEASE
     Route: 048
  6. ABASAGLAR [Concomitant]
     Active Substance: INSULIN GLARGINE
     Indication: DIABETES MELLITUS
     Route: 058
     Dates: start: 20161212, end: 20161219
  7. FASTURTEC [Concomitant]
     Active Substance: RASBURICASE
     Indication: TUMOUR LYSIS SYNDROME
  8. FLECAINE [Concomitant]
     Active Substance: FLECAINIDE
     Indication: ATRIAL FIBRILLATION
     Route: 048
  9. FUROSEMIDE. [Concomitant]
     Active Substance: FUROSEMIDE
     Indication: PRODUCT USED FOR UNKNOWN INDICATION
     Route: 048
  10. PANTOPRAZOLE [Concomitant]
     Active Substance: PANTOPRAZOLE SODIUM
     Indication: PROPHYLAXIS
  11. UMULINE RAPIDE [Concomitant]
     Active Substance: INSULIN ASPART
     Indication: DIABETES MELLITUS
     Dosage: DEPENDING ON GLYCEMIA
     Route: 058
     Dates: start: 20161212, end: 20161219
  12. FASTURTEC [Concomitant]
     Active Substance: RASBURICASE
     Indication: PROPHYLAXIS
  13. METFORMINE [Concomitant]
     Active Substance: METFORMIN HYDROCHLORIDE
     Indication: DIABETES MELLITUS
     Route: 048
  14. VILDAGLIPTINE [Concomitant]
     Indication: DIABETES MELLITUS
     Route: 048
  15. FENOFIBRATE. [Concomitant]
     Active Substance: FENOFIBRATE
     Indication: DYSLIPIDAEMIA
     Route: 048
  16. PANTOPRAZOLE [Concomitant]
     Active Substance: PANTOPRAZOLE SODIUM
     Indication: ULCER
     Route: 048
     Dates: start: 20161212, end: 20161219

REACTIONS (4)
  - Renal impairment [Fatal]
  - Respiratory distress [Fatal]
  - Coma [Fatal]
  - Tumour lysis syndrome [Fatal]

NARRATIVE: CASE EVENT DATE: 20161214
